FAERS Safety Report 20828730 (Version 2)
Quarter: 2022Q3

REPORT INFORMATION
  Report Type: Spontaneous
  Country: US (occurrence: US)
  Receive Date: 20220513
  Receipt Date: 20220709
  Transmission Date: 20221026
  Serious: No
  Sender: FDA-Public Use
  Company Number: US-SA-SAC20220509000523

PATIENT
  Age: 16 Year
  Sex: Female

DRUGS (8)
  1. DUPIXENT [Suspect]
     Active Substance: DUPILUMAB
     Indication: Dermatitis atopic
     Dosage: 300 MG, QOW
     Route: 058
     Dates: start: 20210806
  2. ACYCLOVIR [Concomitant]
     Active Substance: ACYCLOVIR
  3. CLOBETASOL [Concomitant]
     Active Substance: CLOBETASOL
  4. ACYCLOVIR [Concomitant]
     Active Substance: ACYCLOVIR
  5. APRI [Concomitant]
     Active Substance: DESOGESTREL\ETHINYL ESTRADIOL
  6. FLUTICASONE [Concomitant]
     Active Substance: FLUTICASONE
  7. SLYND [Concomitant]
     Active Substance: DROSPIRENONE
  8. TRIAMCINOLONE [Concomitant]
     Active Substance: TRIAMCINOLONE

REACTIONS (3)
  - Rash [Not Recovered/Not Resolved]
  - Discomfort [Not Recovered/Not Resolved]
  - Dermatitis atopic [Unknown]

NARRATIVE: CASE EVENT DATE: 20220401
